FAERS Safety Report 6428658-6 (Version None)
Quarter: 2009Q4

REPORT INFORMATION
  Report Type: 
  Country: None (occurrence: None)
  Receive Date: 20091105
  Receipt Date: 20091023
  Transmission Date: 20100525
  Serious: Yes (Other)
  Sender: FDA-Public Use
  Company Number: JP-PFIZER INC-2009268675

PATIENT
  Age: 77 Year
  Sex: Male
  Weight: 51 kg

DRUGS (1)
  1. ZYVOX [Suspect]
     Indication: ARTHRITIS
     Dosage: 600 MG, 2X/DAY
     Route: 048
     Dates: start: 20090813, end: 20090909

REACTIONS (1)
  - DIPLOPIA [None]
